FAERS Safety Report 7885130-4 (Version None)
Quarter: 2011Q4

REPORT INFORMATION
  Report Type: 
  Country: None (occurrence: None)
  Receive Date: 20111102
  Receipt Date: 20111025
  Transmission Date: 20120403
  Serious: Yes (Other)
  Sender: FDA-Public Use
  Company Number: GB-B.I. PHARMACEUTICALS,INC./RIDGEFIELD-2011-BP-25323YA

PATIENT
  Age: 38 Year
  Sex: Male
  Weight: 83 kg

DRUGS (4)
  1. TAMSULOSIN HCL [Suspect]
     Route: 065
     Dates: start: 20110714
  2. IBUPROFEN [Concomitant]
     Dates: start: 20110809, end: 20110906
  3. ACETAMINOPHEN [Concomitant]
     Dates: start: 20110809, end: 20110906
  4. CITALOPRAM HYDROBROMIDE [Concomitant]
     Dates: start: 20110727, end: 20110923

REACTIONS (3)
  - EYE SWELLING [None]
  - HYPERSENSITIVITY [None]
  - RASH GENERALISED [None]
